FAERS Safety Report 5321281-6 (Version None)
Quarter: 2007Q2

REPORT INFORMATION
  Report Type: 
  Country: None (occurrence: None)
  Receive Date: 20070504
  Receipt Date: 20070420
  Transmission Date: 20071010
  Serious: Yes (Hospitalization)
  Sender: FDA-Public Use
  Company Number: 233177K07USA

PATIENT
  Age: 51 Year
  Sex: Male

DRUGS (2)
  1. REBIF [Suspect]
     Indication: MULTIPLE SCLEROSIS
     Dosage: 44 MCG, 3 IN 1 WEEKS, SUBCUTANEOUS
     Route: 058
     Dates: start: 20070212, end: 20070409
  2. SOLU-MEDROL [Concomitant]

REACTIONS (7)
  - ASTHENIA [None]
  - CONSTIPATION [None]
  - FATIGUE [None]
  - HEADACHE [None]
  - PAIN [None]
  - PAIN IN EXTREMITY [None]
  - VISUAL DISTURBANCE [None]
